FAERS Safety Report 23805284 (Version 1)
Quarter: 2024Q2

REPORT INFORMATION
  Report Type: Other
  Country: US (occurrence: None)
  Receive Date: 20240502
  Receipt Date: 20240502
  Transmission Date: 20240716
  Serious: No
  Sender: FDA-Public Use
  Company Number: US-ROCHE-3462361

PATIENT
  Age: 70 Year
  Sex: Female

DRUGS (7)
  1. OCREVUS [Suspect]
     Active Substance: OCRELIZUMAB
     Indication: Relapsing-remitting multiple sclerosis
     Dosage: MOST RECENT INFUSION ON 27/OCT/2023
     Route: 042
     Dates: start: 20220922
  2. BACLOFEN [Concomitant]
     Active Substance: BACLOFEN
  3. TIZANIDINE [Concomitant]
     Active Substance: TIZANIDINE
  4. PROZAC [Concomitant]
     Active Substance: FLUOXETINE HYDROCHLORIDE
  5. VALIUM [Concomitant]
     Active Substance: DIAZEPAM
  6. PREDNISONE [Concomitant]
     Active Substance: PREDNISONE
  7. ADVIL [Concomitant]
     Active Substance: IBUPROFEN

REACTIONS (17)
  - Cough [Recovered/Resolved]
  - Aphonia [Recovered/Resolved]
  - Rhinorrhoea [Recovered/Resolved]
  - Oropharyngeal pain [Recovered/Resolved]
  - Influenza [Recovered/Resolved]
  - Nasopharyngitis [Recovered/Resolved]
  - Herpes virus infection [Recovered/Resolved]
  - Gastrointestinal disorder [Unknown]
  - Polyp [Recovered/Resolved]
  - Multiple sclerosis [Recovered/Resolved]
  - Loss of consciousness [Recovered/Resolved]
  - Dehydration [Recovered/Resolved]
  - Delirium [Recovered/Resolved]
  - Hypertension [Unknown]
  - Hepatic steatosis [Unknown]
  - Multiple sclerosis [Not Recovered/Not Resolved]
  - Off label use [Unknown]

NARRATIVE: CASE EVENT DATE: 20230101
